FAERS Safety Report 13379831 (Version 3)
Quarter: 2017Q2

REPORT INFORMATION
  Report Type: Spontaneous
  Country: JP (occurrence: JP)
  Receive Date: 20170328
  Receipt Date: 20170501
  Transmission Date: 20170830
  Serious: No
  Sender: FDA-Public Use
  Company Number: JP-ELI_LILLY_AND_COMPANY-JP201703007048

PATIENT
  Age: 24 Year
  Sex: Male

DRUGS (3)
  1. ZYPREXA [Suspect]
     Active Substance: OLANZAPINE
     Indication: PRODUCT USED FOR UNKNOWN INDICATION
     Dosage: 2.5 MG, QD
     Route: 048
     Dates: end: 20170316
  2. ROZEREM [Concomitant]
     Active Substance: RAMELTEON
     Dosage: 4 MG, QD
     Route: 048
     Dates: end: 20160316
  3. ROZEREM [Concomitant]
     Active Substance: RAMELTEON
     Dosage: 8 MG, UNK
     Route: 048
     Dates: start: 20170316

REACTIONS (3)
  - Platelet count decreased [Unknown]
  - Pyelitis [Unknown]
  - Haematuria [Unknown]

NARRATIVE: CASE EVENT DATE: 201703
